FAERS Safety Report 7792619-5 (Version None)
Quarter: 2011Q4

REPORT INFORMATION
  Report Type: 
  Country: None (occurrence: None)
  Receive Date: 20111003
  Receipt Date: 20110921
  Transmission Date: 20120403
  Serious: No
  Sender: FDA-Public Use
  Company Number: US-B.I. PHARMACEUTICALS,INC./RIDGEFIELD-2011-BP-09578BP

PATIENT
  Age: 89 Year
  Sex: Male
  Weight: 78.93 kg

DRUGS (2)
  1. TAMBOCOR [Concomitant]
  2. PRADAXA [Suspect]
     Indication: ATRIAL FIBRILLATION
     Dosage: 300 MG
     Route: 048
     Dates: start: 20110101, end: 20110601

REACTIONS (5)
  - MUSCLE SPASMS [None]
  - NAUSEA [None]
  - ABDOMINAL DISCOMFORT [None]
  - MUSCLE CONTRACTIONS INVOLUNTARY [None]
  - MYALGIA [None]
